FAERS Safety Report 6160489-7 (Version None)
Quarter: 2009Q2

REPORT INFORMATION
  Report Type: 
  Country: None (occurrence: None)
  Receive Date: 20090415
  Receipt Date: 20090415
  Transmission Date: 20091009
  Serious: Yes (Death)
  Sender: FDA-Public Use
  Company Number: None

PATIENT
  Sex: Male

DRUGS (7)
  1. REVLIMID [Suspect]
     Dosage: 10MG DAILY 21D/28D ORAL
     Route: 048
     Dates: start: 20081125, end: 20081216
  2. TERAZOSIN HCL [Concomitant]
  3. CARISOPRODOL [Concomitant]
  4. K-TAB [Concomitant]
  5. PROCRIT [Concomitant]
  6. NEUPOGEN [Concomitant]
  7. OMEPRAZOLE [Concomitant]

REACTIONS (3)
  - DISEASE PROGRESSION [None]
  - MULTIPLE MYELOMA [None]
  - MYELODYSPLASTIC SYNDROME [None]
